FAERS Safety Report 22256750 (Version 1)
Quarter: 2023Q2

REPORT INFORMATION
  Report Type: Spontaneous
  Country: FR (occurrence: FR)
  Receive Date: 20230426
  Receipt Date: 20230426
  Transmission Date: 20230722
  Serious: Yes (Other)
  Sender: FDA-Public Use
  Company Number: FR-SANOFI-01583962

PATIENT
  Age: 78 Year
  Sex: Female

DRUGS (1)
  1. CLOBAZAM [Suspect]
     Active Substance: CLOBAZAM
     Indication: Anxiety
     Dosage: 1 DF, QD EVERY NIGHT
     Route: 048
     Dates: start: 2013

REACTIONS (4)
  - Foreign body in throat [Recovered/Resolved]
  - Panic reaction [Recovered/Resolved]
  - Incorrect product administration duration [Unknown]
  - Wrong technique in product usage process [Unknown]
